FAERS Safety Report 6912739-4 (Version None)
Quarter: 2010Q3

REPORT INFORMATION
  Report Type: 
  Country: None (occurrence: None)
  Receive Date: 20100806
  Receipt Date: 20081030
  Transmission Date: 20110219
  Serious: Yes (Other)
  Sender: FDA-Public Use
  Company Number: US-PFIZER INC-2008092247

PATIENT
  Sex: Male
  Weight: 93.181 kg

DRUGS (13)
  1. DETROL LA [Suspect]
     Indication: NOCTURIA
     Route: 048
     Dates: start: 20081029
  2. ACETYLSALICYLIC ACID SRT [Concomitant]
  3. PLAVIX [Concomitant]
  4. LIPITOR [Concomitant]
  5. LEVOXYL [Concomitant]
  6. FOLIC ACID [Concomitant]
  7. NAMENDA [Concomitant]
  8. KEPPRA [Concomitant]
  9. ALLOPURINOL [Concomitant]
  10. NEXIUM [Concomitant]
  11. CODEINE [Concomitant]
  12. IPRATROPIUM BROMIDE [Concomitant]
  13. ALBUTEROL [Concomitant]

REACTIONS (1)
  - DYSURIA [None]
